FAERS Safety Report 23071298 (Version 1)
Quarter: 2023Q4

REPORT INFORMATION
  Report Type: Spontaneous
  Country: CN (occurrence: CN)
  Receive Date: 20231016
  Receipt Date: 20231016
  Transmission Date: 20240110
  Serious: No
  Sender: FDA-Public Use
  Company Number: CN-009507513-2310CHN003823

PATIENT
  Age: 79 Year
  Sex: Male
  Weight: 51 kg

DRUGS (1)
  1. LAGEVRIO [Suspect]
     Active Substance: MOLNUPIRAVIR
     Indication: Pneumonia
     Dosage: 0.8 G, Q12H
     Route: 048
     Dates: start: 20230927, end: 20230928

REACTIONS (3)
  - Dysuria [Recovered/Resolved]
  - Abdominal distension [Recovered/Resolved]
  - Product use in unapproved indication [Unknown]

NARRATIVE: CASE EVENT DATE: 20230927
